FAERS Safety Report 14961910 (Version 3)
Quarter: 2018Q3

REPORT INFORMATION
  Report Type: Spontaneous
  Country: TZ (occurrence: TZ)
  Receive Date: 20180601
  Receipt Date: 20180822
  Transmission Date: 20181010
  Serious: Yes (Other)
  Sender: FDA-Public Use
  Company Number: TZ-CIPLA (EU) LIMITED-2018TZ17784

PATIENT

DRUGS (4)
  1. COTRIMOXAZOLE [Concomitant]
     Active Substance: SULFAMETHOXAZOLE\TRIMETHOPRIM
     Indication: PROPHYLAXIS
     Dosage: 960 MG, QD
     Route: 065
  2. EFAVIRENZ/EMTRICITABINE/TENOFOVIR [Suspect]
     Active Substance: EFAVIRENZ\EMTRICITABINE\TENOFOVIR DISOPROXIL FUMARATE
     Indication: HIV INFECTION WHO CLINICAL STAGE II
     Dosage: 600MG/200MG/300 MG, UNK
     Route: 065
  3. CETIRIZINE [Concomitant]
     Active Substance: CETIRIZINE HYDROCHLORIDE
     Indication: RASH PAPULAR
     Dosage: 5 MG, QD
     Route: 065
  4. CETIRIZINE [Concomitant]
     Active Substance: CETIRIZINE HYDROCHLORIDE
     Dosage: 5 MG, QD, GIVEN AFTER TINEA INFECTION.
     Route: 065

REACTIONS (2)
  - Tinea infection [Recovered/Resolved]
  - Immune reconstitution inflammatory syndrome [Recovered/Resolved]
